FAERS Safety Report 10151454 (Version 2)
Quarter: 2014Q2

REPORT INFORMATION
  Report Type: Spontaneous
  Country: AU (occurrence: AU)
  Receive Date: 20140502
  Receipt Date: 20140506
  Transmission Date: 20141212
  Serious: Yes (Death)
  Sender: FDA-Public Use
  Company Number: AU-B.I. PHARMACEUTICALS,INC./RIDGEFIELD-2014-BI-19702AU

PATIENT
  Age: 56 Year
  Sex: Female

DRUGS (4)
  1. PRADAXA [Suspect]
     Indication: CEREBROVASCULAR ACCIDENT PROPHYLAXIS
     Route: 065
  2. PRADAXA [Suspect]
     Indication: ATRIAL FIBRILLATION
  3. LIPITOR [Concomitant]
     Route: 065
  4. DIGOXIN [Concomitant]
     Route: 065

REACTIONS (2)
  - Myocardial infarction [Fatal]
  - Off label use [Unknown]
